FAERS Safety Report 24314770 (Version 2)
Quarter: 2024Q4

REPORT INFORMATION
  Report Type: Spontaneous
  Country: US (occurrence: US)
  Receive Date: 20240913
  Receipt Date: 20241015
  Transmission Date: 20250114
  Serious: No
  Sender: ROCHE
  Company Number: US-ROCHE-10000078706

PATIENT
  Age: 89 Year
  Sex: Female

DRUGS (3)
  1. VABYSMO [Suspect]
     Active Substance: FARICIMAB-SVOA
     Indication: Neovascular age-related macular degeneration
     Dosage: 4-5 WEEKS
     Route: 065
     Dates: start: 20240302, end: 20240806
  2. VABYSMO [Suspect]
     Active Substance: FARICIMAB-SVOA
     Dosage: 4-5 WEEKS
     Route: 065
     Dates: start: 20240302, end: 20240806
  3. COSOPT [Concomitant]
     Active Substance: DORZOLAMIDE HYDROCHLORIDE\TIMOLOL MALEATE

REACTIONS (5)
  - Uveitis [Recovered/Resolved]
  - Glaucoma [Unknown]
  - Iridocyclitis [Recovered/Resolved]
  - Vitritis [Recovered/Resolved]
  - Intraocular pressure increased [Unknown]

NARRATIVE: CASE EVENT DATE: 20240809
